FAERS Safety Report 9178366 (Version 1)
Quarter: 2012Q4

REPORT INFORMATION
  Report Type: 
  Country: US (occurrence: US)
  Receive Date: 20121029
  Receipt Date: 20121029
  Transmission Date: 20130627
  Serious: Yes (Other)
  Sender: FDA-Public Use
  Company Number: US-PFIZER INC-2012267276

PATIENT
  Age: 24 Year
  Sex: Female
  Weight: 68.03 kg

DRUGS (4)
  1. LYRICA [Suspect]
     Indication: EPILEPSY
     Dosage: 200 mg, 2x/day
     Route: 048
     Dates: start: 2012
  2. VIMPAT [Concomitant]
     Indication: EPILEPSY
     Dosage: 200 mg, 2x/day
  3. POTIGA [Concomitant]
     Indication: EPILEPSY
     Dosage: 100 mg, 3x/day
  4. CRANBERRY [Concomitant]
     Dosage: UNK

REACTIONS (1)
  - Weight increased [Unknown]
